FAERS Safety Report 15507443 (Version 1)
Quarter: 2018Q4

REPORT INFORMATION
  Report Type: Spontaneous
  Country: CN (occurrence: CN)
  Receive Date: 20181016
  Receipt Date: 20181016
  Transmission Date: 20190205
  Serious: Yes (Other)
  Sender: FDA-Public Use
  Company Number: CN-PFIZER INC-2018411382

PATIENT
  Age: 73 Year
  Sex: Male
  Weight: 73.5 kg

DRUGS (1)
  1. LIPITOR [Suspect]
     Active Substance: ATORVASTATIN CALCIUM
     Indication: ARTERIOSCLEROSIS
     Dosage: 20 MG, 1X/DAY
     Route: 048
     Dates: start: 20180730, end: 20180801

REACTIONS (7)
  - Sinus arrhythmia [Unknown]
  - Blood creatine phosphokinase increased [Unknown]
  - Aspartate aminotransferase increased [Unknown]
  - Blood lactate dehydrogenase increased [Unknown]
  - Myoglobin blood present [Unknown]
  - Electrocardiogram ST-T segment abnormal [Unknown]
  - Blood creatine phosphokinase MB increased [Unknown]

NARRATIVE: CASE EVENT DATE: 20180731
